FAERS Safety Report 24552078 (Version 1)
Quarter: 2024Q4

REPORT INFORMATION
  Report Type: Spontaneous
  Country: US (occurrence: US)
  Receive Date: 20241026
  Receipt Date: 20241026
  Transmission Date: 20250114
  Serious: No
  Sender: MERCK
  Company Number: US-009507513-2410USA005630

PATIENT
  Sex: Male
  Weight: 88.889 kg

DRUGS (9)
  1. WINREVAIR [Suspect]
     Active Substance: SOTATERCEPT-CSRK
     Indication: Product used for unknown indication
     Dosage: UNK
     Route: 058
  2. ORENITRAM [Suspect]
     Active Substance: TREPROSTINIL
     Indication: Pulmonary arterial hypertension
     Dosage: 0.75 MILLIGRAM, BID
     Route: 048
     Dates: start: 20231221
  3. FUROSEMIDE [Concomitant]
     Active Substance: FUROSEMIDE
  4. HYDROXYZINE [Concomitant]
     Active Substance: HYDROXYZINE HYDROCHLORIDE
  5. LEVOTHYROXINE [Concomitant]
     Active Substance: LEVOTHYROXINE
  6. OPSUMIT [Concomitant]
     Active Substance: MACITENTAN
  7. SILDENAFIL CITRATE [Concomitant]
     Active Substance: SILDENAFIL CITRATE
  8. ELIQUIS [Concomitant]
     Active Substance: APIXABAN
  9. OXYGEN [Concomitant]
     Active Substance: OXYGEN

REACTIONS (1)
  - Retching [Unknown]
